FAERS Safety Report 17745402 (Version 1)
Quarter: 2020Q2

REPORT INFORMATION
  Report Type: Spontaneous
  Country: GB (occurrence: GB)
  Receive Date: 20200505
  Receipt Date: 20200505
  Transmission Date: 20200714
  Serious: Yes (Hospitalization, Other)
  Sender: FDA-Public Use
  Company Number: GB-BAXTER-2020BAX007506

PATIENT
  Age: 4 Month
  Sex: Male
  Weight: 7.45 kg

DRUGS (4)
  1. HEPARIN SODIUM AND SODIUM CHLORIDE [Suspect]
     Active Substance: HEPARIN SODIUM
     Indication: INTERVENTIONAL PROCEDURE
     Route: 042
     Dates: start: 20200325, end: 20200325
  2. ATRACURIUM BESILATE [Suspect]
     Active Substance: ATRACURIUM BESYLATE
     Indication: ENDOTRACHEAL INTUBATION
     Dosage: 8.0
     Route: 042
     Dates: start: 20200325, end: 20200325
  3. CHLORHEXIDINE DIGLUCONATE [Suspect]
     Active Substance: CHLORHEXIDINE
     Indication: INFECTION PROPHYLAXIS
     Dosage: SPONGES
     Route: 061
     Dates: start: 20200325, end: 20200325
  4. VISIPAQUE [Suspect]
     Active Substance: IODIXANOL
     Indication: INTERVENTIONAL PROCEDURE
     Route: 042
     Dates: start: 20200325, end: 20200325

REACTIONS (1)
  - Anaphylactic reaction [Recovered/Resolved]

NARRATIVE: CASE EVENT DATE: 20200325
